FAERS Safety Report 22186602 (Version 2)
Quarter: 2023Q2

REPORT INFORMATION
  Report Type: Spontaneous
  Country: US (occurrence: US)
  Receive Date: 20230407
  Receipt Date: 20230411
  Transmission Date: 20230722
  Serious: Yes (Hospitalization)
  Sender: FDA-Public Use
  Company Number: US-RIGEL Pharmaceuticals, INC-2023FOS000359

PATIENT
  Sex: Female

DRUGS (4)
  1. TAVALISSE [Suspect]
     Active Substance: FOSTAMATINIB
     Indication: Uterine cancer
     Dosage: 100 MG, BID
     Route: 048
     Dates: start: 20230207
  2. TAVALISSE [Suspect]
     Active Substance: FOSTAMATINIB
     Indication: Breast cancer female
  3. TAVALISSE [Suspect]
     Active Substance: FOSTAMATINIB
     Indication: Pancytopenia
  4. TAVALISSE [Suspect]
     Active Substance: FOSTAMATINIB
     Indication: Monoclonal gammopathy

REACTIONS (4)
  - Platelet count decreased [Unknown]
  - Ovarian cancer [Unknown]
  - Off label use [Unknown]
  - Product dose omission issue [Unknown]

NARRATIVE: CASE EVENT DATE: 20230101
